FAERS Safety Report 10049909 (Version 1)
Quarter: 2014Q1

REPORT INFORMATION
  Report Type: Spontaneous
  Country: US (occurrence: None)
  Receive Date: 20140331
  Receipt Date: 20140331
  Transmission Date: 20141002
  Serious: Yes (Hospitalization)
  Sender: FDA-Public Use
  Company Number: None

PATIENT
  Age: 62 Year
  Sex: Male
  Weight: 65 kg

DRUGS (1)
  1. HECTOROL [Suspect]
     Indication: VITAMIN SUPPLEMENTATION
     Dosage: 3X WEEK. IVP?
     Route: 042
     Dates: start: 20131216

REACTIONS (4)
  - Back pain [None]
  - Dyspnoea [None]
  - Unevaluable event [None]
  - Moaning [None]
